FAERS Safety Report 22884926 (Version 7)
Quarter: 2023Q4

REPORT INFORMATION
  Report Type: Report from Study
  Country: FR (occurrence: FR)
  Receive Date: 20230830
  Receipt Date: 20231208
  Transmission Date: 20240110
  Serious: Yes (Hospitalization)
  Sender: FDA-Public Use
  Company Number: FR-PFIZER INC-PV202300144944

PATIENT
  Age: 15 Year
  Sex: Female
  Weight: 49.5 kg

DRUGS (11)
  1. IRINOTECAN HYDROCHLORIDE [Suspect]
     Active Substance: IRINOTECAN HYDROCHLORIDE
     Indication: Ewing^s sarcoma
     Dosage: 76 MG, DAYS 1 TO 5 OF A 21 DAY CYCLE
     Route: 042
     Dates: start: 20230731
  2. ABEMACICLIB [Suspect]
     Active Substance: ABEMACICLIB
     Indication: Ewing^s sarcoma
     Dosage: 75 MG, BID, GRANULES
     Route: 048
     Dates: start: 20230731
  3. ABEMACICLIB [Suspect]
     Active Substance: ABEMACICLIB
     Dosage: 75 MG, BID, GRANULES
     Route: 048
  4. ABEMACICLIB [Suspect]
     Active Substance: ABEMACICLIB
     Dosage: 75 MG, BID, GRANULES
     Route: 048
     Dates: start: 20230815
  5. ABEMACICLIB [Suspect]
     Active Substance: ABEMACICLIB
     Dosage: 75 MG, BID, GRANULES
     Route: 048
     Dates: end: 20230822
  6. ABEMACICLIB [Suspect]
     Active Substance: ABEMACICLIB
     Dosage: 75 MG, BID, GRANULES
     Route: 048
     Dates: start: 20230815
  7. TEMOZOLOMIDE [Suspect]
     Active Substance: TEMOZOLOMIDE
     Indication: Ewing^s sarcoma
     Dosage: 150 MG, DAYS 1 TO 5 OF A 21 DAY CYCLE
     Route: 048
     Dates: start: 20230731
  8. LEVOTHYROXINE [Concomitant]
     Active Substance: LEVOTHYROXINE
     Indication: Blood thyroid stimulating hormone increased
     Dosage: UNK
     Dates: start: 202303
  9. BACTRIM [Concomitant]
     Active Substance: SULFAMETHOXAZOLE\TRIMETHOPRIM
     Indication: Prophylaxis
     Dosage: UNK
     Dates: start: 20230731
  10. CEFIXIME [Concomitant]
     Active Substance: CEFIXIME
     Indication: Prophylaxis
     Dosage: UNK
     Dates: start: 20230729
  11. ESOMEPRAZOLE [Concomitant]
     Active Substance: ESOMEPRAZOLE
     Indication: Prophylaxis
     Dosage: UNK
     Dates: start: 20230804

REACTIONS (2)
  - Enterocolitis [Recovered/Resolved]
  - Abdominal pain [Recovered/Resolved]

NARRATIVE: CASE EVENT DATE: 20230811
